FAERS Safety Report 17206119 (Version 1)
Quarter: 2020Q1

REPORT INFORMATION
  Report Type: Spontaneous
  Country: US (occurrence: US)
  Receive Date: 20191226
  Receipt Date: 20191226
  Transmission Date: 20200409
  Serious: No
  Sender: FDA-Public Use
  Company Number: None

PATIENT
  Age: 63 Year
  Sex: Female
  Weight: 83 kg

DRUGS (5)
  1. ZOFRAN [Concomitant]
     Active Substance: ONDANSETRON HYDROCHLORIDE
     Dates: start: 20191220, end: 20191220
  2. VANCOMYCIN [Concomitant]
     Active Substance: VANCOMYCIN
     Dates: start: 20191220, end: 20191220
  3. TORADOL [Concomitant]
     Active Substance: KETOROLAC TROMETHAMINE
     Dates: start: 20191220, end: 20191220
  4. AZTREONAM. [Suspect]
     Active Substance: AZTREONAM
     Indication: URINARY TRACT INFECTION
     Dosage: ?          OTHER FREQUENCY:EVERY 8 HOURS;?
     Route: 041
     Dates: start: 20191220, end: 20191220
  5. MORPHINE [Concomitant]
     Active Substance: MORPHINE
     Dates: start: 20191220, end: 20191220

REACTIONS (3)
  - Iatrogenic injury [None]
  - Drug-induced liver injury [None]
  - Transaminases increased [None]

NARRATIVE: CASE EVENT DATE: 20191220
